FAERS Safety Report 5523622-3 (Version None)
Quarter: 2007Q4

REPORT INFORMATION
  Report Type: 
  Country: None (occurrence: None)
  Receive Date: 20071121
  Receipt Date: 20071109
  Transmission Date: 20080405
  Serious: Yes (Other)
  Sender: FDA-Public Use
  Company Number: GB-ASTRAZENECA-2007GB02275

PATIENT
  Age: 45 Year
  Sex: Female

DRUGS (1)
  1. LIGNOCAINE [Suspect]
     Indication: ANAESTHESIA
     Route: 058
     Dates: start: 20070926, end: 20070926

REACTIONS (4)
  - EMOTIONAL DISTRESS [None]
  - HYPOAESTHESIA ORAL [None]
  - PARAESTHESIA ORAL [None]
  - TEARFULNESS [None]
